FAERS Safety Report 5231208-3 (Version None)
Quarter: 2007Q1

REPORT INFORMATION
  Report Type: 
  Country: None (occurrence: None)
  Receive Date: 20070202
  Receipt Date: 20070116
  Transmission Date: 20070707
  Serious: Yes (Hospitalization)
  Sender: FDA-Public Use
  Company Number: 2007BI000125

PATIENT
  Age: 61 Year
  Sex: Male

DRUGS (11)
  1. NATALIZUMAB [Suspect]
     Indication: MULTIPLE SCLEROSIS
     Dosage: 300 MG; QM; IV
     Route: 042
     Dates: start: 20061002, end: 20061127
  2. ZYRTEC [Concomitant]
  3. COREG [Concomitant]
  4. ZANAFLEX [Concomitant]
  5. NAPROSYN [Concomitant]
  6. VYTORIN [Concomitant]
  7. VALIUM [Concomitant]
  8. DIGOXIN [Concomitant]
  9. THYROID REPLACEMENT [Concomitant]
  10. FLOMAX [Concomitant]
  11. AMANTADINE HCL [Concomitant]

REACTIONS (22)
  - ASTHENIA [None]
  - ATRIAL FIBRILLATION [None]
  - BLOOD GLUCOSE INCREASED [None]
  - BLOOD UREA INCREASED [None]
  - BODY TEMPERATURE DECREASED [None]
  - CLOSTRIDIUM DIFFICILE COLITIS [None]
  - DEHYDRATION [None]
  - DRUG INEFFECTIVE [None]
  - FATIGUE [None]
  - GASTROENTERITIS VIRAL [None]
  - HAEMATOCRIT DECREASED [None]
  - HAEMOGLOBIN DECREASED [None]
  - HEART RATE IRREGULAR [None]
  - INFECTION [None]
  - ORTHOSTATIC HYPOTENSION [None]
  - OXYGEN SATURATION DECREASED [None]
  - PRESYNCOPE [None]
  - PROTEIN URINE PRESENT [None]
  - PULSE PRESSURE DECREASED [None]
  - SEPSIS [None]
  - TOOTH ABSCESS [None]
  - TREATMENT NONCOMPLIANCE [None]
